FAERS Safety Report 18473673 (Version 1)
Quarter: 2020Q4

REPORT INFORMATION
  Report Type: Spontaneous
  Country: IL (occurrence: IL)
  Receive Date: 20201106
  Receipt Date: 20201106
  Transmission Date: 20210114
  Serious: Yes (Hospitalization)
  Sender: FDA-Public Use
  Company Number: IL-AMNEAL PHARMACEUTICALS-2020-AMRX-03461

PATIENT
  Age: 24 Year
  Sex: Male

DRUGS (1)
  1. ADRENACLICK [Suspect]
     Active Substance: EPINEPHRINE
     Indication: FUNCTIONAL ENDOSCOPIC SINUS SURGERY
     Dosage: 1:1000 DILUTION
     Route: 065

REACTIONS (1)
  - Congestive cardiomyopathy [Recovered/Resolved]
